FAERS Safety Report 11331082 (Version 1)
Quarter: 2015Q3

REPORT INFORMATION
  Report Type: Spontaneous
  Country: US (occurrence: None)
  Receive Date: 20150731
  Receipt Date: 20150731
  Transmission Date: 20151125
  Serious: Yes (Death, Hospitalization)
  Sender: FDA-Public Use
  Company Number: None

PATIENT
  Age: 65 Year
  Sex: Female
  Weight: 127.01 kg

DRUGS (2)
  1. ALEVE [Suspect]
     Active Substance: NAPROXEN SODIUM
     Indication: ARTHRITIS
     Dosage: 2-3 PILLS, ALTERNATIVE TO MOBIC FOR YEARS
     Route: 048
  2. MOBIC [Suspect]
     Active Substance: MELOXICAM
     Indication: ARTHRITIS
     Dosage: 1 PILL, OFF AND ON FOR YEARS
     Route: 048

REACTIONS (18)
  - Rash generalised [None]
  - Unresponsive to stimuli [None]
  - Infection [None]
  - Pulmonary thrombosis [None]
  - Exfoliative rash [None]
  - Fluid retention [None]
  - Unevaluable event [None]
  - Dialysis [None]
  - Rectal haemorrhage [None]
  - Intestinal ulcer perforation [None]
  - Urticaria [None]
  - Morganella test positive [None]
  - Enterococcal infection [None]
  - Wound [None]
  - Dyspnoea [None]
  - Jaundice [None]
  - Gastrointestinal ulcer haemorrhage [None]
  - Renal failure [None]

NARRATIVE: CASE EVENT DATE: 20150709
